FAERS Safety Report 5588300-3 (Version None)
Quarter: 2008Q1

REPORT INFORMATION
  Report Type: 
  Country: None (occurrence: None)
  Receive Date: 20080111
  Receipt Date: 20080107
  Transmission Date: 20080703
  Serious: Yes (Hospitalization)
  Sender: FDA-Public Use
  Company Number: FR-ASTRAZENECA-2008CG00024

PATIENT
  Age: 83 Year
  Sex: Female

DRUGS (5)
  1. TENORMIN [Suspect]
     Route: 048
     Dates: end: 20070201
  2. TRIATEC [Interacting]
     Route: 048
  3. LASILIX [Interacting]
     Route: 048
  4. NOLVADEX [Concomitant]
     Route: 048
  5. KARDEGIC [Concomitant]

REACTIONS (4)
  - DRUG INTERACTION [None]
  - FALL [None]
  - LOSS OF CONSCIOUSNESS [None]
  - ORTHOSTATIC HYPOTENSION [None]
